FAERS Safety Report 11176742 (Version 1)
Quarter: 2015Q2

REPORT INFORMATION
  Report Type: Spontaneous
  Country: US (occurrence: None)
  Receive Date: 20150608
  Receipt Date: 20150608
  Transmission Date: 20150821
  Serious: Yes (Other)
  Sender: FDA-Public Use
  Company Number: ADE15-040

PATIENT

DRUGS (1)
  1. ADENOSINE INJECTION [Suspect]
     Active Substance: ADENOSINE
     Dosage: 180 MG TOTAL DOSE
     Route: 042
     Dates: start: 20150504, end: 20150504

REACTIONS (1)
  - Drug ineffective [None]

NARRATIVE: CASE EVENT DATE: 20150504
